FAERS Safety Report 4888572-4 (Version None)
Quarter: 2005Q4

REPORT INFORMATION
  Report Type: 
  Country: None (occurrence: None)
  Receive Date: 20051215
  Receipt Date: 20041124
  Transmission Date: 20060501
  Serious: Yes (Hospitalization, Other)
  Sender: FDA-Public Use
  Company Number: 2004236173US

PATIENT
  Age: 34 Year
  Sex: Female

DRUGS (2)
  1. BEXTRA [Suspect]
     Indication: NECK PAIN
     Dosage: 40 MG (20 MG, BID), ORAL
     Route: 048
  2. ACETAMINOPHEN [Concomitant]

REACTIONS (1)
  - GASTROINTESTINAL HAEMORRHAGE [None]
